FAERS Safety Report 8653440 (Version 5)
Quarter: 2012Q4

REPORT INFORMATION
  Report Type: 
  Country: US (occurrence: US)
  Receive Date: 20120706
  Receipt Date: 20121219
  Transmission Date: 20130627
  Serious: Yes (Death, Hospitalization)
  Sender: FDA-Public Use
  Company Number: PHHO2012US009876

PATIENT
  Age: 63 Year
  Sex: Male
  Weight: 43.3 kg

DRUGS (24)
  1. LDE 225 [Suspect]
     Indication: ADENOCARCINOMA PANCREAS
     Dosage: 200 mg, UNK
     Route: 048
     Dates: start: 20120611, end: 20120625
  2. LDE 225 [Suspect]
     Dosage: 200 mg, QD
     Route: 048
     Dates: end: 20121114
  3. FLUOROURACIL [Suspect]
     Indication: ADENOCARCINOMA PANCREAS
     Dosage: 1200 mg/m2, UNK
     Route: 065
     Dates: start: 20120611, end: 20120625
  4. FLUOROURACIL [Suspect]
     Dosage: 900 mg/m2, UNK
     Route: 042
     Dates: start: 20120723, end: 20121112
  5. LEUCOVORIN CALCIUM [Suspect]
     Indication: ADENOCARCINOMA PANCREAS
     Dosage: 400 mg, UNK
     Route: 065
     Dates: start: 20120611, end: 20120625
  6. LEUCOVORIN CALCIUM [Suspect]
     Dosage: 400 mg/m2, UNK
     Route: 042
     Dates: end: 20121112
  7. IRINOTECAN [Suspect]
     Indication: ADENOCARCINOMA PANCREAS
     Dosage: 150 mg/m2, UNK
     Route: 065
     Dates: start: 20120611, end: 20120625
  8. IRINOTECAN [Suspect]
     Dosage: 120 UNK, UNK
     Route: 042
     Dates: start: 20120723, end: 20121112
  9. OXALIPLATIN [Suspect]
     Indication: ADENOCARCINOMA PANCREAS
     Dosage: 65 mg/m2, UNK
     Route: 065
     Dates: start: 20120611, end: 20120625
  10. OXALIPLATIN [Suspect]
     Dosage: 65 mg/m2, UNK
     Route: 042
     Dates: end: 20121112
  11. BACLOFEN [Concomitant]
     Dosage: 10 mg, QID
     Route: 048
  12. DEXAMETHASONE [Concomitant]
     Indication: NAUSEA
     Dosage: 4 mg, PRN
     Route: 048
  13. EMEND [Concomitant]
     Dosage: 125-80-80 mg
     Route: 048
  14. LORAZEPAM [Concomitant]
     Indication: NAUSEA
     Dosage: 1 mg, PRN
     Route: 048
  15. MORPHINE [Concomitant]
     Dosage: 15 mg, Q4H
     Route: 048
  16. ONDANSETRON [Concomitant]
     Dosage: 8 mg, Q8H
     Route: 048
  17. PROCHLORPERAZINE [Concomitant]
     Indication: NAUSEA
     Dosage: 10 mg, Q6H
     Route: 048
  18. REGLAN [Concomitant]
     Dosage: 10 mg, QID
     Route: 048
  19. NEULASTA [Concomitant]
  20. LOMOTIL [Concomitant]
  21. METHYLPHENIDATE [Concomitant]
     Dosage: 5 mg, UNK
  22. MS CONTIN [Concomitant]
     Dosage: 30 mg, UNK
  23. NYSTATIN [Concomitant]
     Dosage: 5 ml, UNK
  24. ZYPREXA ZYDIS [Concomitant]
     Dosage: 5 mg, UNK

REACTIONS (9)
  - Failure to thrive [Recovering/Resolving]
  - Hypoglycaemia [Recovering/Resolving]
  - Blood alkaline phosphatase increased [Recovering/Resolving]
  - Nausea [Recovered/Resolved]
  - Decreased appetite [Unknown]
  - Fatigue [Recovering/Resolving]
  - Alanine aminotransferase increased [Recovering/Resolving]
  - Aspartate aminotransferase increased [Recovering/Resolving]
  - Disease progression [Fatal]
